FAERS Safety Report 6333714-7 (Version None)
Quarter: 2009Q3

REPORT INFORMATION
  Report Type: 
  Country: None (occurrence: None)
  Receive Date: 20090829
  Receipt Date: 20090521
  Transmission Date: 20100115
  Serious: No
  Sender: FDA-Public Use
  Company Number: US-ABBOTT-09P-163-0576865-00

PATIENT
  Sex: Male

DRUGS (2)
  1. SIMCOR [Suspect]
     Indication: DYSLIPIDAEMIA
     Dosage: 500/20 MG 1IN 1 DAY
     Route: 048
     Dates: start: 20090515
  2. SIMCOR [Suspect]
     Dosage: 1000/20MG 1 IN 1 DAY
     Route: 048
     Dates: start: 20080101, end: 20090514

REACTIONS (3)
  - PRURITUS [None]
  - RASH GENERALISED [None]
  - SWELLING [None]
